FAERS Safety Report 6809069-8 (Version None)
Quarter: 2010Q2

REPORT INFORMATION
  Report Type: 
  Country: None (occurrence: None)
  Receive Date: 20100630
  Receipt Date: 20100621
  Transmission Date: 20101027
  Serious: No
  Sender: FDA-Public Use
  Company Number: US-BIOGENIDEC-2010BI014313

PATIENT
  Age: 23 Year
  Sex: Female

DRUGS (1)
  1. TYSABRI [Suspect]
     Indication: MULTIPLE SCLEROSIS
     Route: 042
     Dates: start: 20100329, end: 20100426

REACTIONS (6)
  - DIZZINESS [None]
  - HEADACHE [None]
  - MIGRAINE [None]
  - NAUSEA [None]
  - NECK PAIN [None]
  - VERTIGO [None]
